FAERS Safety Report 8174864 (Version 3)
Quarter: 2013Q2

REPORT INFORMATION
  Report Type: Spontaneous
  Country: US (occurrence: US)
  Receive Date: 20111011
  Receipt Date: 20130424
  Transmission Date: 20140414
  Serious: No
  Sender: FDA-Public Use
  Company Number: US-BIOGENIDEC-2011BI038076

PATIENT
  Age: 53 Year
  Sex: Female

DRUGS (1)
  1. TYSABRI [Suspect]
     Indication: MULTIPLE SCLEROSIS
     Route: 042
     Dates: start: 20110429, end: 20110916

REACTIONS (5)
  - Infusion related reaction [Recovered/Resolved]
  - Multiple sclerosis relapse [Unknown]
  - Pain [Recovered/Resolved]
  - Bradycardia [Unknown]
  - Hypersensitivity [Recovered/Resolved]
